FAERS Safety Report 21397621 (Version 1)
Quarter: 2022Q3

REPORT INFORMATION
  Report Type: Spontaneous
  Country: JP (occurrence: JP)
  Receive Date: 20220930
  Receipt Date: 20220930
  Transmission Date: 20221027
  Serious: No
  Sender: FDA-Public Use
  Company Number: JP-ALLERGAN-2232123US

PATIENT
  Age: 7 Decade
  Sex: Female

DRUGS (3)
  1. ASENAPINE MALEATE [Suspect]
     Active Substance: ASENAPINE MALEATE
     Indication: Psychotic disorder
     Dosage: 5 MG, QD
     Route: 048
  2. PERAMPANEL [Concomitant]
     Active Substance: PERAMPANEL
  3. VALPROATE SODIUM [Concomitant]
     Active Substance: VALPROATE SODIUM

REACTIONS (2)
  - Erythema [Recovered/Resolved]
  - Off label use [Unknown]
